FAERS Safety Report 12807459 (Version 1)
Quarter: 2016Q4

REPORT INFORMATION
  Report Type: Spontaneous
  Country: US (occurrence: US)
  Receive Date: 20161004
  Receipt Date: 20161004
  Transmission Date: 20170207
  Serious: No
  Sender: FDA-Public Use
  Company Number: None

PATIENT
  Sex: Female

DRUGS (1)
  1. RENVELA [Suspect]
     Active Substance: SEVELAMER CARBONATE
     Indication: RENAL DISORDER
     Route: 048
     Dates: start: 20160910

REACTIONS (3)
  - Drug dose omission [None]
  - Loss of consciousness [None]
  - Seizure [None]
